FAERS Safety Report 20643325 (Version 1)
Quarter: 2022Q1

REPORT INFORMATION
  Report Type: Spontaneous
  Country: US (occurrence: None)
  Receive Date: 20220325
  Receipt Date: 20220325
  Transmission Date: 20220423
  Serious: Yes (Other)
  Sender: FDA-Public Use
  Company Number: None

PATIENT
  Age: 67 Year
  Sex: Female
  Weight: 51.3 kg

DRUGS (10)
  1. CEFEPIME [Suspect]
     Active Substance: CEFEPIME HYDROCHLORIDE
     Indication: Bacterial infection
     Dosage: FREQUENCY : 3 TIMES A DAY;?OTHER ROUTE : INTRAVENOUS;?
     Route: 050
     Dates: start: 20220116, end: 20220127
  2. SYNTHROID [Concomitant]
     Active Substance: LEVOTHYROXINE SODIUM
  3. BACLOFEN [Concomitant]
     Active Substance: BACLOFEN
  4. DIAZEPAM [Concomitant]
     Active Substance: DIAZEPAM
  5. hydrocodone prn [Concomitant]
  6. CPAP MACHINE [Concomitant]
  7. INDWELLING FOLEY CATHETER WITH DRAINAGE ACCESSORIES [Concomitant]
  8. VITAMINS [Concomitant]
     Active Substance: VITAMINS
  9. VITAMIN K ADDITION FOR SLOW BLOOD CLOTTING [Concomitant]
  10. EASY ABSOBABLE COLLAGEN SUPPLMENT FOR INCREASED PROTEIN INTAKE [Concomitant]

REACTIONS (9)
  - Stupor [None]
  - Amnesia [None]
  - Fear [None]
  - Incorrect dose administered [None]
  - Hepatic enzyme increased [None]
  - Heart rate increased [None]
  - Product complaint [None]
  - Product confusion [None]
  - Inflammatory marker increased [None]

NARRATIVE: CASE EVENT DATE: 20220127
